FAERS Safety Report 8136325-6 (Version None)
Quarter: 2012Q1

REPORT INFORMATION
  Report Type: 
  Country: None (occurrence: None)
  Receive Date: 20120214
  Receipt Date: 20120213
  Transmission Date: 20120608
  Serious: No
  Sender: FDA-Public Use
  Company Number: US-BAYER-2012-014639

PATIENT
  Age: 57 Year
  Sex: Female
  Weight: 57.143 kg

DRUGS (8)
  1. RECLAST [Concomitant]
  2. ATENOLOL [Concomitant]
     Dosage: 100 MG, UNK
  3. BETASERON [Suspect]
     Dosage: 0.3 MG, QOD
     Route: 058
  4. ASPIRIN [Concomitant]
  5. FISH OIL [Concomitant]
  6. LOVASTATIN [Concomitant]
     Dosage: 20 MG, UNK
  7. CITALOPRAM HYDROBROMIDE [Concomitant]
     Dosage: 20 MG, UNK
  8. ESSENTIALE [VITAMINS NOS] [Concomitant]

REACTIONS (1)
  - HYPERHIDROSIS [None]
